FAERS Safety Report 18078144 (Version 1)
Quarter: 2020Q3

REPORT INFORMATION
  Report Type: Spontaneous
  Country: US (occurrence: US)
  Receive Date: 20200727
  Receipt Date: 20200727
  Transmission Date: 20201103
  Serious: No
  Sender: FDA-Public Use
  Company Number: US-SEATTLE GENETICS-2020SGN02905

PATIENT
  Sex: Female

DRUGS (2)
  1. TUKYSA [Suspect]
     Active Substance: TUCATINIB
     Indication: BREAST CANCER FEMALE
  2. OXYCODONE [Suspect]
     Active Substance: OXYCODONE

REACTIONS (8)
  - Gait disturbance [Unknown]
  - Epistaxis [Unknown]
  - Neuropathy peripheral [Not Recovered/Not Resolved]
  - Insomnia [Unknown]
  - Sneezing [Unknown]
  - Drug interaction [Unknown]
  - Walking aid user [Unknown]
  - Restless legs syndrome [Not Recovered/Not Resolved]
